FAERS Safety Report 13704458 (Version 1)
Quarter: 2017Q2

REPORT INFORMATION
  Report Type: Spontaneous
  Country: CZ (occurrence: CZ)
  Receive Date: 20170630
  Receipt Date: 20170630
  Transmission Date: 20170912
  Serious: Yes (Other)
  Sender: FDA-Public Use
  Company Number: CZ-BAXTER-2017BAX026743

PATIENT
  Sex: Female

DRUGS (1)
  1. TISSEEL [Suspect]
     Active Substance: FIBRINOGEN HUMAN\THROMBIN HUMAN
     Indication: TISSUE SEALING
     Route: 065

REACTIONS (3)
  - Drug ineffective [Unknown]
  - Fistula [Unknown]
  - Cerebrospinal fluid leakage [Unknown]
